FAERS Safety Report 19782034 (Version 1)
Quarter: 2021Q3

REPORT INFORMATION
  Report Type: Spontaneous
  Country: DE (occurrence: DE)
  Receive Date: 20210902
  Receipt Date: 20210902
  Transmission Date: 20211014
  Serious: Yes (Hospitalization)
  Sender: FDA-Public Use
  Company Number: DE-MYLANLABS-2021M1057648

PATIENT
  Age: 65 Year
  Sex: Male

DRUGS (10)
  1. ASPIRIN. [Concomitant]
     Active Substance: ASPIRIN
     Dosage: 100 MILLIGRAM, QD, 100 MG, 0?1?0?0
  2. METOPROLOL. [Concomitant]
     Active Substance: METOPROLOL
     Dosage: 23.75 MG, 0?0?0.5?0
  3. TIM?OPHTAL [Concomitant]
     Active Substance: TIMOLOL MALEATE
     Dosage: 1?0?0?0, TROPFEN
     Route: 047
  4. SIMVASTATIN. [Concomitant]
     Active Substance: SIMVASTATIN
     Dosage: 10 MILLIGRAM, QD 10 MG, 0?0?1?0
  5. TAFLUPROST [Concomitant]
     Active Substance: TAFLUPROST
     Dosage: 0?0?1?0, TROPFEN
     Route: 047
  6. OLUMIANT [Concomitant]
     Active Substance: BARICITINIB
     Dosage: 4 MILLIGRAM, QD (4 MG, 1?0?0?0)
  7. METHOTREXATE. [Suspect]
     Active Substance: METHOTREXATE
     Indication: PRODUCT USED FOR UNKNOWN INDICATION
     Dosage: 15 MILLIGRAM, QW (THURSDAYS)
  8. FOLSAEURE [Concomitant]
     Active Substance: FOLIC ACID
     Dosage: 5 MG / WEEK, 1X FREITAGS
  9. PREDNISOLON                        /00016201/ [Concomitant]
     Active Substance: PREDNISOLONE
     Dosage: UNK, BEDARF
  10. CLOPIDOGREL [Concomitant]
     Active Substance: CLOPIDOGREL BISULFATE
     Dosage: 75 MILLIGRAM, QD, 75 MG, 1?0?0?0

REACTIONS (2)
  - Angina pectoris [Recovered/Resolved]
  - Dyspnoea exertional [Recovered/Resolved]
